FAERS Safety Report 12266241 (Version 1)
Quarter: 2016Q2

REPORT INFORMATION
  Report Type: Spontaneous
  Country: None (occurrence: None)
  Receive Date: 20160413
  Receipt Date: 20160413
  Transmission Date: 20160815
  Serious: No
  Sender: FDA-Public Use
  Company Number: None

PATIENT
  Age: 58 Year
  Sex: Male

DRUGS (1)
  1. STELARA [Suspect]
     Active Substance: USTEKINUMAB
     Indication: RHEUMATOID ARTHRITIS
     Dosage: Q12W
     Route: 058
     Dates: start: 201104

REACTIONS (6)
  - Myalgia [None]
  - Headache [None]
  - Chest pain [None]
  - Dyspnoea [None]
  - Pain [None]
  - No therapeutic response [None]

NARRATIVE: CASE EVENT DATE: 20160329
